FAERS Safety Report 21254095 (Version 1)
Quarter: 2022Q3

REPORT INFORMATION
  Report Type: Spontaneous
  Country: US (occurrence: None)
  Receive Date: 20220824
  Receipt Date: 20220824
  Transmission Date: 20221026
  Serious: No
  Sender: FDA-Public Use
  Company Number: None

PATIENT
  Age: 72 Year
  Sex: Male

DRUGS (1)
  1. VELCADE [Suspect]
     Active Substance: BORTEZOMIB
     Dosage: 3.5MG  OTHER  OTHER?
     Route: 050
     Dates: start: 20220823

REACTIONS (1)
  - Adverse reaction [None]

NARRATIVE: CASE EVENT DATE: 20220823
